FAERS Safety Report 8113302 (Version 2)
Quarter: 2012Q4

REPORT INFORMATION
  Report Type: 
  Country: US (occurrence: US)
  Receive Date: 20110830
  Receipt Date: 20121210
  Transmission Date: 20130627
  Serious: Yes (Death, Hospitalization)
  Sender: FDA-Public Use
  Company Number: US-GLAXOSMITHKLINE-A0814595A

PATIENT
  Age: 84 Year
  Sex: Female
  Weight: 64.1 kg

DRUGS (10)
  1. AVANDIA [Suspect]
     Indication: TYPE 2 DIABETES MELLITUS
     Dosage: 8MG Per day
     Route: 048
     Dates: end: 20031219
  2. XANAX [Concomitant]
  3. FLEXERIL [Concomitant]
  4. PLAVIX [Concomitant]
  5. GLIPIZIDE [Concomitant]
  6. SYNTHROID [Concomitant]
  7. KLOR-CON [Concomitant]
  8. OCEAN [Concomitant]
  9. SINEMET [Concomitant]
  10. DESYREL [Concomitant]

REACTIONS (5)
  - Cardiac failure congestive [Fatal]
  - Arteriosclerosis coronary artery [Unknown]
  - Cerebral infarction [Unknown]
  - Renal failure [Unknown]
  - Coagulopathy [Unknown]
